FAERS Safety Report 21799309 (Version 1)
Quarter: 2022Q4

REPORT INFORMATION
  Report Type: Spontaneous
  Country: RO (occurrence: US)
  Receive Date: 20221230
  Receipt Date: 20221230
  Transmission Date: 20230113
  Serious: Yes (Other)
  Sender: FDA-Public Use
  Company Number: RO-BAYER-2022P033099

PATIENT
  Sex: Female

DRUGS (1)
  1. MIRENA [Suspect]
     Active Substance: LEVONORGESTREL
     Indication: Intermenstrual bleeding
     Dosage: 20?G/DAY
     Route: 015
     Dates: start: 202207

REACTIONS (4)
  - Genital haemorrhage [None]
  - Device expulsion [None]
  - Device use issue [None]
  - Off label use of device [None]
